FAERS Safety Report 5047754-1 (Version None)
Quarter: 2006Q3

REPORT INFORMATION
  Report Type: 
  Country: None (occurrence: None)
  Receive Date: 20060710
  Receipt Date: 20060710
  Transmission Date: 20061208
  Serious: Yes (Hospitalization)
  Sender: FDA-Public Use
  Company Number: None

PATIENT
  Age: 56 Year
  Sex: Male

DRUGS (4)
  1. CIPROFLOXACIN [Suspect]
     Indication: PERINEAL ABSCESS
     Dosage: 750MG PO BID
     Route: 048
     Dates: start: 20060429, end: 20060506
  2. CIPRO [Concomitant]
  3. FLAGYL [Concomitant]
  4. COLACE [Concomitant]

REACTIONS (4)
  - HYPOTENSION [None]
  - RASH ERYTHEMATOUS [None]
  - RASH PRURITIC [None]
  - UROSEPSIS [None]
